FAERS Safety Report 23976562 (Version 1)
Quarter: 2024Q2

REPORT INFORMATION
  Report Type: Spontaneous
  Country: GR (occurrence: GR)
  Receive Date: 20240614
  Receipt Date: 20240614
  Transmission Date: 20240715
  Serious: Yes (Other)
  Sender: FDA-Public Use
  Company Number: GR-SUN PHARMACEUTICAL INDUSTRIES LTD-2024R1-450765

PATIENT
  Age: 45 Year
  Sex: Male

DRUGS (4)
  1. CISPLATIN [Suspect]
     Active Substance: CISPLATIN
     Indication: Adrenal gland cancer
     Dosage: UNK (THREE CYCLES)
     Route: 065
  2. DOCETAXEL [Suspect]
     Active Substance: DOCETAXEL\DOCETAXEL ANHYDROUS
     Indication: Adrenal gland cancer
     Dosage: UNK (THREE CYCLES)
     Route: 065
  3. DENOSUMAB [Suspect]
     Active Substance: DENOSUMAB
     Indication: Metastases to bone
     Dosage: UNK (EVERY 28 DAYS)
     Route: 065
  4. MITOTANE [Suspect]
     Active Substance: MITOTANE
     Indication: Metastases to bone
     Dosage: UNK (EVERY 28 DAYS)
     Route: 065

REACTIONS (1)
  - Disease progression [Unknown]
